FAERS Safety Report 10154776 (Version 1)
Quarter: 2014Q2

REPORT INFORMATION
  Report Type: Spontaneous
  Country: US (occurrence: None)
  Receive Date: 20140505
  Receipt Date: 20140505
  Transmission Date: 20141212
  Serious: Yes (Disabling)
  Sender: FDA-Public Use
  Company Number: None

PATIENT
  Age: 57 Year
  Sex: Male
  Weight: 65.77 kg

DRUGS (1)
  1. TOPIRAMATE [Suspect]
     Indication: MIGRAINE PROPHYLAXIS
     Dosage: INCREASING, FOUR TIMES DAILY, TAKEN BY MOUTH
     Route: 048

REACTIONS (4)
  - Amnesia [None]
  - Erectile dysfunction [None]
  - Muscle spasms [None]
  - Tinnitus [None]
